FAERS Safety Report 9335592 (Version 1)
Quarter: 2013Q2

REPORT INFORMATION
  Report Type: Spontaneous
  Country: US (occurrence: US)
  Receive Date: 20130605
  Receipt Date: 20130605
  Transmission Date: 20140414
  Serious: No
  Sender: FDA-Public Use
  Company Number: US-009507513-1305USA016714

PATIENT
  Age: 30 Year
  Sex: Male

DRUGS (1)
  1. CLARINEX-D-12 [Suspect]
     Indication: HYPERSENSITIVITY
     Dosage: UNSPECIFIED, TWICE DAILY
     Route: 048
     Dates: start: 200305, end: 201306

REACTIONS (1)
  - Drug ineffective [Unknown]
